FAERS Safety Report 5890131-1 (Version None)
Quarter: 2008Q3

REPORT INFORMATION
  Report Type: 
  Country: None (occurrence: None)
  Receive Date: 20080919
  Receipt Date: 20080910
  Transmission Date: 20090109
  Serious: Yes (Other)
  Sender: FDA-Public Use
  Company Number: US-JNJCH-2008023784

PATIENT
  Age: 27 Year
  Sex: Male
  Weight: 81.6 kg

DRUGS (1)
  1. BENADRYL [Suspect]
     Indication: DRUG USE FOR UNKNOWN INDICATION
     Dosage: TEXT:2 TABLETS FREQUENCY UNKNOWN
     Route: 048

REACTIONS (1)
  - LOSS OF CONSCIOUSNESS [None]
